FAERS Safety Report 4669165-0 (Version None)
Quarter: 2005Q2

REPORT INFORMATION
  Report Type: 
  Country: None (occurrence: None)
  Receive Date: 20050519
  Receipt Date: 20050513
  Transmission Date: 20051028
  Serious: Yes (Other)
  Sender: FDA-Public Use
  Company Number: 2005-05-0898

PATIENT
  Age: 30 Year
  Sex: Male

DRUGS (2)
  1. GARAMYCIN (GENTAMYCIN SULFATE) OPHTHALMIC SOLUTION [Suspect]
     Indication: KERATITIS
     Dosage: OPHTHALMIC
  2. CHLORAMPHENICOL [Suspect]
     Indication: KERATITIS
     Dosage: OPHTHALMIC
     Route: 047

REACTIONS (2)
  - CORNEAL DISORDER [None]
  - VISUAL ACUITY REDUCED [None]
